FAERS Safety Report 16312973 (Version 1)
Quarter: 2019Q2

REPORT INFORMATION
  Report Type: Spontaneous
  Country: US (occurrence: US)
  Receive Date: 20190408
  Receipt Date: 20190408
  Transmission Date: 20190711
  Serious: No
  Sender: FDA-Public Use
  Company Number: None

PATIENT

DRUGS (1)
  1. APIXIBAN [Suspect]
     Active Substance: APIXABAN

REACTIONS (2)
  - Haematuria [None]
  - Anaemia [None]
